FAERS Safety Report 4601676-6 (Version None)
Quarter: 2005Q1

REPORT INFORMATION
  Report Type: 
  Country: None (occurrence: None)
  Receive Date: 20050131
  Receipt Date: 20041022
  Transmission Date: 20050727
  Serious: No
  Sender: FDA-Public Use
  Company Number: 200418127US

PATIENT
  Age: 40 Year
  Sex: Female
  Weight: 53.6 kg

DRUGS (8)
  1. KETEK [Suspect]
     Indication: SINUSITIS
     Dosage: 400 MG QD PO
     Route: 048
  2. SULFOGAIACOL [Concomitant]
  3. CODEINE PHOSPHATE [Concomitant]
  4. PROMETHAZINE HCL [Concomitant]
  5. CHLOROFORM [Concomitant]
  6. SODIUM CITRATE [Concomitant]
  7. CITRIC ACID [Concomitant]
  8. IPECACUANHA FLUID EXTRACT  (PHENERGAN WITH CODEINE) [Concomitant]

REACTIONS (1)
  - MIGRAINE [None]
